FAERS Safety Report 6934111-3 (Version None)
Quarter: 2010Q3

REPORT INFORMATION
  Report Type: 
  Country: None (occurrence: None)
  Receive Date: 20100820
  Receipt Date: 20100804
  Transmission Date: 20110219
  Serious: Yes (Life-Threatening, Other)
  Sender: FDA-Public Use
  Company Number: US-MERCK-1007USA03067

PATIENT
  Age: 52 Year
  Sex: Female

DRUGS (14)
  1. IVEMEND [Suspect]
     Indication: NAUSEA
     Route: 042
     Dates: start: 20100722, end: 20100722
  2. IVEMEND [Suspect]
     Indication: VOMITING
     Route: 042
     Dates: start: 20100722, end: 20100722
  3. LISINOPRIL [Concomitant]
     Route: 048
  4. COMPAZINE [Concomitant]
     Route: 065
  5. SENOKOT [Concomitant]
     Route: 065
  6. NEULASTA [Concomitant]
     Route: 065
  7. REGLAN [Concomitant]
     Route: 065
  8. ZOFRAN [Concomitant]
     Route: 065
  9. COLACE [Concomitant]
     Route: 065
  10. KLONOPIN [Concomitant]
     Route: 065
  11. PRILOSEC [Concomitant]
     Route: 048
  12. ZYRTEC [Concomitant]
     Route: 065
  13. FLUTICASONE [Concomitant]
     Route: 065
  14. DALTEPARIN SODIUM [Concomitant]
     Route: 065

REACTIONS (1)
  - ANAPHYLACTIC REACTION [None]
